FAERS Safety Report 25715783 (Version 1)
Quarter: 2025Q3

REPORT INFORMATION
  Report Type: Spontaneous
  Country: US (occurrence: None)
  Receive Date: 20250821
  Receipt Date: 20250821
  Transmission Date: 20251021
  Serious: Yes (Death)
  Sender: FDA-CTU
  Company Number: None

PATIENT
  Age: 70 Year
  Sex: Female

DRUGS (10)
  1. FUROSEMIDE [Suspect]
     Active Substance: FUROSEMIDE
  2. HYDRALAZINE [Suspect]
     Active Substance: HYDRALAZINE HYDROCHLORIDE
  3. CLONIDINE [Suspect]
     Active Substance: CLONIDINE
  4. CARVEDILOL [Suspect]
     Active Substance: CARVEDILOL
  5. ASPIRIN [Suspect]
     Active Substance: ASPIRIN
  6. LOVASTATIN [Suspect]
     Active Substance: LOVASTATIN
  7. MESALAMINE [Suspect]
     Active Substance: MESALAMINE
  8. NITROGLYCERIN [Suspect]
     Active Substance: NITROGLYCERIN
  9. NOVOLOG [Suspect]
     Active Substance: INSULIN ASPART
  10. RANOLAZINE [Suspect]
     Active Substance: RANOLAZINE

REACTIONS (1)
  - Death [None]

NARRATIVE: CASE EVENT DATE: 20250801
